FAERS Safety Report 5397531-7 (Version None)
Quarter: 2007Q3

REPORT INFORMATION
  Report Type: 
  Country: None (occurrence: None)
  Receive Date: 20070726
  Receipt Date: 20070711
  Transmission Date: 20080115
  Serious: Yes (Other)
  Sender: FDA-Public Use
  Company Number: PHBS2007BR11991

PATIENT
  Age: 73 Year
  Sex: Male
  Weight: 72 kg

DRUGS (11)
  1. EXELON [Suspect]
     Indication: DEMENTIA ALZHEIMER'S TYPE
     Dosage: 1.5 MG, Q12H
     Route: 048
  2. EXELON [Suspect]
     Dosage: 1.5 MG, Q8H
     Route: 048
     Dates: end: 20070301
  3. ATENOLOL [Concomitant]
     Indication: HYPERTENSION
     Dosage: 1 DF, QHS
     Route: 048
  4. RIVOTRIL [Concomitant]
     Indication: HALLUCINATION
     Dosage: 2 MG, QHS
     Route: 048
  5. MIVELIT [Concomitant]
     Indication: BLOOD CHOLESTEROL INCREASED
     Dosage: 1 DF, QHS
     Route: 048
  6. DIOVAN HCT [Suspect]
     Indication: HYPERTENSION
     Dosage: 160 MG/D
     Route: 048
  7. DIOVAN [Suspect]
     Indication: HYPERTENSION
     Dosage: 320 MG/D
     Route: 048
  8. RISPERIDONE [Concomitant]
     Indication: HALLUCINATION
     Dosage: 1 MG, Q12H
     Route: 048
  9. CARBAMAZEPINE [Concomitant]
     Indication: HALLUCINATION
     Dosage: 1 DF, Q12H
     Route: 048
  10. CILOCAR [Concomitant]
     Indication: OEDEMA PERIPHERAL
     Dosage: 1 DF, IN THE MORNING
     Route: 048
  11. HYDROCHLOROTHIAZIDE [Concomitant]
     Indication: DIURETIC THERAPY
     Dosage: 1 DF, Q48H
     Route: 048

REACTIONS (11)
  - ABNORMAL BEHAVIOUR [None]
  - AGGRESSION [None]
  - AMNESIA [None]
  - CONSTIPATION [None]
  - DEMENTIA ALZHEIMER'S TYPE [None]
  - DISORIENTATION [None]
  - EATING DISORDER [None]
  - NEGLECT OF PERSONAL APPEARANCE [None]
  - PHYSICAL ASSAULT [None]
  - URINARY INCONTINENCE [None]
  - WEIGHT DECREASED [None]
